FAERS Safety Report 24451099 (Version 1)
Quarter: 2024Q4

REPORT INFORMATION
  Report Type: Spontaneous
  Country: US (occurrence: None)
  Receive Date: 20241017
  Receipt Date: 20241017
  Transmission Date: 20250115
  Serious: Yes (Death, Life-Threatening, Hospitalization)
  Sender: Public
  Company Number: None

PATIENT
  Age: 78 Year
  Sex: Male
  Weight: 77.7 kg

DRUGS (5)
  1. CLOFAZIMINE [Suspect]
     Active Substance: CLOFAZIMINE
     Indication: Atypical mycobacterial infection
     Dosage: FREQUENCY : DAILY;?
     Route: 048
     Dates: start: 20240207, end: 20240908
  2. DEVICE [Suspect]
     Active Substance: DEVICE
  3. ETHAMBUTOL [Concomitant]
     Active Substance: ETHAMBUTOL HYDROCHLORIDE
     Dates: start: 20240207, end: 20240920
  4. AZITHROMYCIN [Concomitant]
     Active Substance: AZITHROMYCIN
     Dates: start: 20240207, end: 20240910
  5. AMIKACIN [Concomitant]
     Active Substance: AMIKACIN

REACTIONS (10)
  - Acute respiratory failure [None]
  - Hypoxia [None]
  - Hypercapnia [None]
  - Refusal of treatment by patient [None]
  - Dysphagia [None]
  - Unresponsive to stimuli [None]
  - Pneumothorax [None]
  - Hyperkalaemia [None]
  - Iatrogenic injury [None]
  - Haemodialysis [None]

NARRATIVE: CASE EVENT DATE: 20240908
